FAERS Safety Report 9925604 (Version 1)
Quarter: 2014Q1

REPORT INFORMATION
  Report Type: Spontaneous
  Country: US (occurrence: None)
  Receive Date: 20140221
  Receipt Date: 20140221
  Transmission Date: 20141002
  Serious: Yes (Hospitalization)
  Sender: FDA-Public Use
  Company Number: SYM-2013-08973

PATIENT
  Age: 62 Year
  Sex: Female

DRUGS (3)
  1. XENAZINE (25 MILLIGRAM, TABLET) (TETRABENAZINE, TETRABENAZINE)? [Suspect]
     Indication: DYSTONIA
     Dosage: 25MG, 2 IN 1 D, ORAL
     Route: 048
     Dates: start: 20130830
  2. XANAX (ALPRAZOLAM) (ALPRAZOLAM) [Concomitant]
  3. AMBIEN (ZOLPIDEM TARTRATE) (ZOLPIDEM TARTRATE) [Concomitant]

REACTIONS (7)
  - Drooling [None]
  - Pain in extremity [None]
  - Myalgia [None]
  - Memory impairment [None]
  - Dysphagia [None]
  - Lethargy [None]
  - Weight decreased [None]
